FAERS Safety Report 4535500-7 (Version None)
Quarter: 2004Q4

REPORT INFORMATION
  Report Type: 
  Country: None (occurrence: None)
  Receive Date: 20041222
  Receipt Date: 20041115
  Transmission Date: 20050328
  Serious: Yes (Life-Threatening, Hospitalization, Disabling)
  Sender: FDA-Public Use
  Company Number: US-MERCK-0411USA02668

PATIENT
  Age: 60 Year
  Sex: Female
  Weight: 107 kg

DRUGS (13)
  1. VIOXX [Suspect]
     Indication: OSTEOARTHRITIS
     Route: 048
     Dates: start: 20040827, end: 20040930
  2. PROCARDIA XL [Concomitant]
     Route: 065
  3. LODINE XL [Concomitant]
     Route: 065
  4. TRICOR [Concomitant]
     Route: 065
  5. PREVACID [Concomitant]
     Route: 065
  6. TRAZODONE HYDROCHLORIDE [Concomitant]
     Route: 065
  7. ATIVAN [Concomitant]
     Route: 065
  8. ALLOPURINOL [Concomitant]
     Route: 065
  9. CLONIDINE [Concomitant]
     Route: 065
  10. BUSPAR [Concomitant]
     Route: 065
  11. TENORMIN [Concomitant]
     Route: 065
  12. PAXIL [Concomitant]
     Route: 065
  13. NEURONTIN [Concomitant]
     Route: 065

REACTIONS (1)
  - MYOCARDIAL INFARCTION [None]
